FAERS Safety Report 9302448 (Version 1)
Quarter: 2013Q2

REPORT INFORMATION
  Report Type: Spontaneous
  Country: TR (occurrence: None)
  Receive Date: 20130516
  Receipt Date: 20130516
  Transmission Date: 20140414
  Serious: Yes (Death, Other)
  Sender: FDA-Public Use
  Company Number: FK201301523

PATIENT
  Age: 79 Year
  Sex: Male

DRUGS (1)
  1. HEPARIN [Suspect]
     Indication: HAEMODIALYSIS

REACTIONS (3)
  - Septic shock [None]
  - Heparin-induced thrombocytopenia [None]
  - Upper gastrointestinal haemorrhage [None]
